FAERS Safety Report 24716191 (Version 4)
Quarter: 2024Q4

REPORT INFORMATION
  Report Type: Spontaneous
  Country: PL (occurrence: PL)
  Receive Date: 20241210
  Receipt Date: 20241230
  Transmission Date: 20250114
  Serious: Yes (Other)
  Sender: SANDOZ
  Company Number: None

PATIENT
  Age: 90 Year
  Sex: Female

DRUGS (22)
  1. AMOXICILLIN\CLAVULANIC ACID [Suspect]
     Active Substance: AMOXICILLIN\CLAVULANIC ACID
     Indication: Skin bacterial infection
     Dosage: UNK
     Route: 065
  2. AMOXICILLIN\CLAVULANIC ACID [Suspect]
     Active Substance: AMOXICILLIN\CLAVULANIC ACID
     Indication: Skin lesion
  3. DESLORATADINE [Suspect]
     Active Substance: DESLORATADINE
     Indication: Skin bacterial infection
     Dosage: UNK
     Route: 065
  4. DESLORATADINE [Suspect]
     Active Substance: DESLORATADINE
     Indication: Skin lesion
  5. PREDNISONE [Suspect]
     Active Substance: PREDNISONE
     Indication: Pemphigoid
     Dosage: INITIAL DOSE OF 20 MG/24 H, GRADUALLY REDUCED EVERY 7 DAYS
     Route: 065
  6. QUETIAPINE [Suspect]
     Active Substance: QUETIAPINE
     Indication: Product used for unknown indication
     Route: 065
  7. RIVAROXABAN [Suspect]
     Active Substance: RIVAROXABAN
     Indication: Product used for unknown indication
     Dosage: UNK
     Route: 065
  8. RIVAROXABAN [Suspect]
     Active Substance: RIVAROXABAN
     Indication: Product used for unknown indication
     Dosage: 10 MG
     Route: 065
  9. RIVAROXABAN [Suspect]
     Active Substance: RIVAROXABAN
     Dosage: 15 MG
     Route: 065
  10. RIVAROXABAN [Suspect]
     Active Substance: RIVAROXABAN
     Dosage: 2.5 MG
     Route: 065
  11. RIVAROXABAN [Suspect]
     Active Substance: RIVAROXABAN
     Dosage: 20 MG
     Route: 065
  12. BETAMETHASONE [Concomitant]
     Active Substance: BETAMETHASONE
     Indication: Product used for unknown indication
     Route: 061
  13. BETAMETHASONE DIPROPIONATE\CLOTRIMAZOLE\GENTAMICIN SULFATE [Concomitant]
     Active Substance: BETAMETHASONE DIPROPIONATE\CLOTRIMAZOLE\GENTAMICIN SULFATE
     Indication: Skin lesion
     Dosage: UNK
     Route: 061
  14. CLOBETASOL PROPIONATE [Concomitant]
     Active Substance: CLOBETASOL PROPIONATE
     Indication: Product used for unknown indication
     Dosage: UNK
     Route: 061
  15. CLOTRIMAZOLE [Concomitant]
     Active Substance: CLOTRIMAZOLE
     Indication: Skin lesion
     Route: 061
  16. DOXYCYCLINE [Concomitant]
     Active Substance: DOXYCYCLINE
     Indication: Pemphigoid
     Dosage: UNK
     Route: 048
  17. DOXYCYCLINE [Concomitant]
     Active Substance: DOXYCYCLINE
     Indication: Rebound effect
  18. GENTAMICIN SULFATE [Concomitant]
     Active Substance: GENTAMICIN SULFATE
     Indication: Skin lesion
     Route: 061
  19. METHYLPREDNISOLONE [Concomitant]
     Active Substance: METHYLPREDNISOLONE
     Indication: Immunosuppression
     Dosage: AT AN INITIAL DOSE; THEN CHRONIC ADMINISTRATION OF THE DRUG AT SLOWLY TAPERED DOSES
     Route: 048
  20. METHYLPREDNISOLONE [Concomitant]
     Active Substance: METHYLPREDNISOLONE
     Indication: Type III immune complex mediated reaction
  21. NIACINAMIDE [Concomitant]
     Active Substance: NIACINAMIDE
     Indication: Type III immune complex mediated reaction
     Dosage: UNK
     Route: 065
  22. QUETIAPINE [Concomitant]
     Active Substance: QUETIAPINE
     Indication: Product used for unknown indication
     Route: 065

REACTIONS (6)
  - Pemphigoid [Unknown]
  - Basal cell carcinoma [Unknown]
  - Rebound effect [Unknown]
  - Condition aggravated [Unknown]
  - Product prescribing error [Unknown]
  - Medication error [Unknown]
